FAERS Safety Report 7326996-6 (Version None)
Quarter: 2011Q1

REPORT INFORMATION
  Report Type: 
  Country: None (occurrence: None)
  Receive Date: 20110302
  Receipt Date: 20110224
  Transmission Date: 20110831
  Serious: Yes (Other)
  Sender: FDA-Public Use
  Company Number: US-AMGEN-USASP2011011191

PATIENT
  Age: 75 Year
  Sex: Female

DRUGS (2)
  1. NPLATE [Suspect]
     Indication: IDIOPATHIC THROMBOCYTOPENIC PURPURA
     Dates: start: 20090910, end: 20110112
  2. CORTICOSTEROIDS [Concomitant]

REACTIONS (2)
  - THROMBOCYTOPENIA [None]
  - PROCEDURAL PAIN [None]
